FAERS Safety Report 4607569-2 (Version None)
Quarter: 2005Q1

REPORT INFORMATION
  Report Type: 
  Country: None (occurrence: None)
  Receive Date: 20050314
  Receipt Date: 20050131
  Transmission Date: 20050727
  Serious: Yes (Life-Threatening, Hospitalization, Congenital Anomaly)
  Sender: FDA-Public Use
  Company Number: PHRM2005FR00689

PATIENT
  Age: 31 Year
  Sex: Female
  Weight: 60 kg

DRUGS (10)
  1. TEGRETOL [Suspect]
     Indication: EPILEPSY
     Dosage: UNK, UNK
     Route: 048
     Dates: start: 19900101, end: 20050110
  2. DI-HYDAN [Suspect]
     Indication: EPILEPSY
     Dosage: 300 MG/DAY
     Route: 048
     Dates: start: 19900101, end: 20041223
  3. SPECIAFOLDINE [Suspect]
     Route: 048
  4. RIVOTRIL [Suspect]
     Dosage: 1 DF/DAY
     Route: 048
     Dates: start: 19900101, end: 20041223
  5. KEPPRA [Suspect]
     Indication: EPILEPSY
     Dosage: 1 G, BID
     Route: 048
     Dates: start: 20041224, end: 20050111
  6. PRODILANTIN [Suspect]
     Dosage: UNK, UNK
     Dates: start: 20041223
  7. RIVOTRIL [Suspect]
     Indication: STATUS EPILEPTICUS
     Route: 042
     Dates: start: 20041223
  8. DILANTIN [Suspect]
     Dosage: UNK, UNK
     Route: 042
     Dates: start: 20041223
  9. NESDONAL [Suspect]
     Indication: MAINTENANCE OF ANAESTHESIA
     Dosage: UNK, UNK
     Dates: start: 20041223, end: 20050105
  10. XYLOCAINE [Concomitant]
     Indication: MAINTENANCE OF ANAESTHESIA
     Dosage: UNK, UNK
     Route: 042
     Dates: start: 20041231

REACTIONS (21)
  - ABDOMINAL DISTENSION [None]
  - AGITATION [None]
  - COMA [None]
  - CONSTIPATION [None]
  - DRUG EXPOSURE DURING PREGNANCY [None]
  - ELECTROENCEPHALOGRAM ABNORMAL [None]
  - ENEMA ADMINISTRATION [None]
  - FOETAL MALFORMATION [None]
  - GRAND MAL CONVULSION [None]
  - HYPOXIA [None]
  - INTRA-UTERINE DEATH [None]
  - INTUBATION [None]
  - LARYNGEAL OEDEMA [None]
  - LUNG DISORDER [None]
  - MAINTENANCE OF ANAESTHESIA [None]
  - PETIT MAL EPILEPSY [None]
  - QUADRIPARESIS [None]
  - STATUS EPILEPTICUS [None]
  - SUPERINFECTION [None]
  - TRACHEOSTOMY [None]
  - UPPER RESPIRATORY TRACT INFECTION BACTERIAL [None]
